FAERS Safety Report 10246022 (Version 1)
Quarter: 2014Q2

REPORT INFORMATION
  Report Type: Spontaneous
  Country: US (occurrence: None)
  Receive Date: 20140617
  Receipt Date: 20140617
  Transmission Date: 20141212
  Serious: Yes (Life-Threatening)
  Sender: FDA-Public Use
  Company Number: None

PATIENT
  Age: 7 Year
  Sex: Male
  Weight: 24.95 kg

DRUGS (1)
  1. TB TEST-LEFT FOREARM [Suspect]
     Indication: TUBERCULIN TEST
     Dosage: TB TEST GIVEN INTO/UNDER THE SKIN
     Dates: start: 20140616, end: 20140616

REACTIONS (1)
  - Convulsion [None]
